FAERS Safety Report 25351267 (Version 1)
Quarter: 2025Q2

REPORT INFORMATION
  Report Type: Report from Study
  Country: CA (occurrence: CA)
  Receive Date: 20250523
  Receipt Date: 20250523
  Transmission Date: 20250717
  Serious: Yes (Hospitalization, Other)
  Sender: SAMSUNG BIOEPIS
  Company Number: CA-SAMSUNG BIOEPIS-SB-2021-02390

PATIENT
  Age: 45 Year
  Sex: Female

DRUGS (12)
  1. RENFLEXIS [Suspect]
     Active Substance: INFLIXIMAB-ABDA
     Indication: Crohn^s disease
     Dates: start: 20191214
  2. RENFLEXIS [Suspect]
     Active Substance: INFLIXIMAB-ABDA
  3. RENFLEXIS [Suspect]
     Active Substance: INFLIXIMAB-ABDA
  4. RENFLEXIS [Suspect]
     Active Substance: INFLIXIMAB-ABDA
  5. RENFLEXIS [Suspect]
     Active Substance: INFLIXIMAB-ABDA
  6. RENFLEXIS [Suspect]
     Active Substance: INFLIXIMAB-ABDA
  7. RENFLEXIS [Suspect]
     Active Substance: INFLIXIMAB-ABDA
  8. RENFLEXIS [Suspect]
     Active Substance: INFLIXIMAB-ABDA
  9. RENFLEXIS [Suspect]
     Active Substance: INFLIXIMAB-ABDA
     Dates: start: 201912
  10. RENFLEXIS [Suspect]
     Active Substance: INFLIXIMAB-ABDA
     Dates: start: 201912
  11. MACROBID [Suspect]
     Active Substance: NITROFURANTOIN\NITROFURANTOIN MONOHYDRATE
     Indication: Urinary tract infection
     Dates: start: 20210125
  12. METFORMIN [Suspect]
     Active Substance: METFORMIN HYDROCHLORIDE
     Indication: Product used for unknown indication

REACTIONS (15)
  - Urinary tract infection [Recovered/Resolved]
  - Nephrolithiasis [Recovered/Resolved]
  - Crohn^s disease [Recovered/Resolved]
  - Uterine leiomyoma [Unknown]
  - Stress [Unknown]
  - Asthenia [Unknown]
  - Anaemia [Recovering/Resolving]
  - Weight increased [Unknown]
  - Arthralgia [Recovering/Resolving]
  - Therapeutic response shortened [Unknown]
  - Brain fog [Not Recovered/Not Resolved]
  - Product residue present [Unknown]
  - Off label use [Unknown]
  - C-reactive protein increased [Unknown]
  - Psoriasis [Not Recovered/Not Resolved]

NARRATIVE: CASE EVENT DATE: 20250201
